FAERS Safety Report 8199073-2 (Version None)
Quarter: 2012Q1

REPORT INFORMATION
  Report Type: 
  Country: None (occurrence: None)
  Receive Date: 20120309
  Receipt Date: 20120305
  Transmission Date: 20120608
  Serious: Yes (Other)
  Sender: FDA-Public Use
  Company Number: ZW-VIIV HEALTHCARE LIMITED-B0787236A

PATIENT
  Sex: Female
  Weight: 47.8 kg

DRUGS (4)
  1. LAMIVUDINE (EPIVIR HBV) [Suspect]
     Indication: HIV INFECTION
     Dosage: 300MG AT NIGHT
     Route: 048
     Dates: start: 20100318
  2. LOPINAVIR/RITONAVIR [Suspect]
     Indication: HIV INFECTION
     Route: 048
     Dates: start: 20120130
  3. EFAVIRENZ [Suspect]
     Indication: HIV INFECTION
     Dosage: 600MG AT NIGHT
     Route: 048
     Dates: start: 20100210, end: 20120130
  4. STAVUDINE [Suspect]
     Indication: HIV INFECTION
     Dosage: 30MG TWICE PER DAY
     Route: 048
     Dates: start: 20100318

REACTIONS (1)
  - ABORTION SPONTANEOUS [None]
